FAERS Safety Report 20040300 (Version 1)
Quarter: 2021Q4

REPORT INFORMATION
  Report Type: Spontaneous
  Country: CA (occurrence: CA)
  Receive Date: 20211106
  Receipt Date: 20211106
  Transmission Date: 20220304
  Serious: Yes (Hospitalization)
  Sender: FDA-Public Use
  Company Number: CA-TEVA-2021-CA-1972918

PATIENT
  Age: 70 Year
  Sex: Male
  Weight: 58 kg

DRUGS (11)
  1. PREDNISONE [Suspect]
     Active Substance: PREDNISONE
     Dosage: 10 MILLIGRAM DAILY;
     Route: 048
  2. AMLODIPINE [Concomitant]
     Active Substance: AMLODIPINE BESYLATE
  3. DEXAMETHASONE [Concomitant]
     Active Substance: DEXAMETHASONE
  4. DOCETAXEL [Concomitant]
     Active Substance: DOCETAXEL
     Route: 065
  5. HYDROCHLOROTHIAZIDE [Concomitant]
     Active Substance: HYDROCHLOROTHIAZIDE
  6. LOMOTIL [Concomitant]
     Active Substance: ATROPINE SULFATE\DIPHENOXYLATE HYDROCHLORIDE
  7. PEGFILGRASTIM [Concomitant]
     Active Substance: PEGFILGRASTIM
  8. POTASSIUM CHLORIDE [Concomitant]
     Active Substance: POTASSIUM CHLORIDE
  9. TRELSTAR [Concomitant]
     Active Substance: TRIPTORELIN PAMOATE
  10. TYLENOL WITH CODEINE [Concomitant]
     Active Substance: ACETAMINOPHEN\CODEINE PHOSPHATE
  11. VITAMIN D3 [Concomitant]
     Active Substance: CHOLECALCIFEROL

REACTIONS (3)
  - Erosive oesophagitis [Unknown]
  - Gastrointestinal haemorrhage [Unknown]
  - Peptic ulcer [Unknown]
